FAERS Safety Report 25934754 (Version 2)
Quarter: 2025Q4

REPORT INFORMATION
  Report Type: Spontaneous
  Country: US (occurrence: US)
  Receive Date: 20251017
  Receipt Date: 20251211
  Transmission Date: 20260118
  Serious: Yes (Other)
  Sender: RANBAXY
  Company Number: US-SUN PHARMACEUTICAL INDUSTRIES INC-2025R1-532204

PATIENT
  Age: 58 Year
  Sex: Male

DRUGS (1)
  1. DOCETAXEL [Suspect]
     Active Substance: DOCETAXEL
     Indication: Prostate cancer
     Dosage: UNK 14 CYCLES
     Route: 065

REACTIONS (2)
  - Neuropathy peripheral [Unknown]
  - Neoplasm progression [Unknown]
